FAERS Safety Report 8883313 (Version 1)
Quarter: 2012Q4

REPORT INFORMATION
  Report Type: 
  Country: CA (occurrence: CA)
  Receive Date: 20121102
  Receipt Date: 20121102
  Transmission Date: 20130627
  Serious: Yes (Death, Other)
  Sender: FDA-Public Use
  Company Number: CA-PFIZER INC-2012265448

PATIENT
  Sex: Male
  Weight: 79 kg

DRUGS (1)
  1. VALDECOXIB [Suspect]
     Dosage: 20 mg, 1x/day with food
     Route: 048

REACTIONS (3)
  - Myocardial ischaemia [Fatal]
  - Arrhythmia [Fatal]
  - Arteriosclerosis coronary artery [Fatal]
